FAERS Safety Report 12234765 (Version 1)
Quarter: 2016Q2

REPORT INFORMATION
  Report Type: Spontaneous
  Country: US (occurrence: US)
  Receive Date: 20160404
  Receipt Date: 20160404
  Transmission Date: 20160815
  Serious: No
  Sender: FDA-Public Use
  Company Number: US-WARNER CHILCOTT, LLC-1050183

PATIENT
  Age: 45 Year
  Sex: Female

DRUGS (1)
  1. FEMRING [Suspect]
     Active Substance: ESTRADIOL ACETATE
     Indication: HORMONE REPLACEMENT THERAPY
     Route: 067
     Dates: start: 20150811, end: 20150812

REACTIONS (3)
  - Vulvovaginal pain [Not Recovered/Not Resolved]
  - Abdominal pain lower [Recovered/Resolved]
  - Vulvovaginal discomfort [Recovered/Resolved]
